FAERS Safety Report 13543026 (Version 1)
Quarter: 2017Q2

REPORT INFORMATION
  Report Type: Spontaneous
  Country: US (occurrence: US)
  Receive Date: 20170513
  Receipt Date: 20170513
  Transmission Date: 20170830
  Serious: Yes (Life-Threatening, Other)
  Sender: FDA-Public Use
  Company Number: US-ACCORD-051362

PATIENT
  Age: 47 Year
  Sex: Male

DRUGS (3)
  1. FLUOROURACIL. [Suspect]
     Active Substance: FLUOROURACIL
     Indication: SQUAMOUS CELL CARCINOMA OF THE TONGUE
  2. CISPLATIN. [Concomitant]
     Active Substance: CISPLATIN
     Indication: SQUAMOUS CELL CARCINOMA OF THE TONGUE
  3. PACLITAXEL/PACLITAXEL LIPOSOME [Concomitant]
     Indication: SQUAMOUS CELL CARCINOMA OF THE TONGUE

REACTIONS (3)
  - Off label use [Unknown]
  - Myocarditis [Recovered/Resolved]
  - Syncope [Recovered/Resolved]
